FAERS Safety Report 19604271 (Version 6)
Quarter: 2021Q3

REPORT INFORMATION
  Report Type: Report from Study
  Country: None (occurrence: KR)
  Receive Date: 20210724
  Receipt Date: 20210930
  Transmission Date: 20211014
  Serious: Yes (Hospitalization, Other)
  Sender: FDA-Public Use
  Company Number: KR-ABBVIE-21K-090-4003050-00

PATIENT
  Age: 67 Year
  Sex: Female
  Weight: 72 kg

DRUGS (9)
  1. SKYRIZI [Suspect]
     Active Substance: RISANKIZUMAB-RZAA
     Route: 058
     Dates: start: 20210917, end: 20210917
  2. PENNEL [Concomitant]
     Indication: LIVER FUNCTION TEST ABNORMAL
     Route: 048
     Dates: start: 20210607, end: 20210720
  3. DESOWEN [Concomitant]
     Active Substance: DESONIDE
     Indication: PSORIASIS
     Dosage: FINGER TIP UNIT, LOTION; DESOWEN LOTION 0.05%
     Route: 061
     Dates: start: 20210625
  4. LEGALON [Concomitant]
     Active Substance: DIETARY SUPPLEMENT\HERBALS\MILK THISTLE
     Indication: LIVER FUNCTION TEST ABNORMAL
     Dosage: 140
     Route: 048
     Dates: start: 20210607
  5. EUVAX B [Concomitant]
     Active Substance: HEPATITIS B VIRUS VACCINE
     Indication: HEPATITIS B IMMUNISATION
     Dosage: PREFILLED INJECTION
     Route: 030
     Dates: start: 20210607, end: 20210607
  6. SKYRIZI [Suspect]
     Active Substance: RISANKIZUMAB-RZAA
     Route: 058
     Dates: start: 20210625, end: 20210625
  7. URSA [Concomitant]
     Active Substance: URSODIOL
     Indication: LIVER FUNCTION TEST ABNORMAL
     Dosage: URSA?100MG
     Route: 048
     Dates: start: 20210607, end: 20210720
  8. EUVAX B [Concomitant]
     Active Substance: HEPATITIS B VIRUS VACCINE
     Dosage: PREFILLED INJECTION
     Route: 030
     Dates: start: 20210705, end: 20210705
  9. SKYRIZI [Suspect]
     Active Substance: RISANKIZUMAB-RZAA
     Indication: PSORIASIS
     Route: 058
     Dates: start: 20210528, end: 20210528

REACTIONS (1)
  - Hepatic cirrhosis [Not Recovered/Not Resolved]

NARRATIVE: CASE EVENT DATE: 20210705
